FAERS Safety Report 10131254 (Version 1)
Quarter: 2014Q2

REPORT INFORMATION
  Report Type: Spontaneous
  Country: US (occurrence: US)
  Receive Date: 20140428
  Receipt Date: 20140428
  Transmission Date: 20141212
  Serious: Yes (Death)
  Sender: FDA-Public Use
  Company Number: US-PFIZER INC-2014116607

PATIENT
  Sex: Male

DRUGS (5)
  1. CHANTIX [Suspect]
     Indication: SMOKING CESSATION THERAPY
     Dosage: UNK
     Dates: start: 2009, end: 2009
  2. CHANTIX [Suspect]
     Dosage: UNK
     Dates: start: 2012
  3. ATORVASTATIN [Concomitant]
     Dosage: UNK
  4. LISINOPRIL [Concomitant]
     Dosage: UNK
  5. VENLAFAXINE [Concomitant]
     Dosage: UNK

REACTIONS (1)
  - Completed suicide [Fatal]
